FAERS Safety Report 7677104-3 (Version None)
Quarter: 2011Q3

REPORT INFORMATION
  Report Type: 
  Country: None (occurrence: None)
  Receive Date: 20110811
  Receipt Date: 20110809
  Transmission Date: 20111222
  Serious: Yes (Hospitalization)
  Sender: FDA-Public Use
  Company Number: IT-ROCHE-795753

PATIENT
  Sex: Male

DRUGS (2)
  1. COPEGUS [Concomitant]
     Indication: HEPATITIS C
     Route: 048
     Dates: start: 20110719, end: 20110803
  2. PEGASYS [Suspect]
     Indication: HEPATITIS C
     Route: 058
     Dates: start: 20110722, end: 20110803

REACTIONS (3)
  - RENAL COLIC [None]
  - URINARY TRACT INFECTION [None]
  - PYREXIA [None]
